FAERS Safety Report 9262558 (Version 2)
Quarter: 2013Q2

REPORT INFORMATION
  Report Type: Spontaneous
  Country: FR (occurrence: None)
  Receive Date: 20130426
  Receipt Date: 20130514
  Transmission Date: 20140414
  Serious: Yes (Other)
  Sender: FDA-Public Use
  Company Number: 2013P1004915

PATIENT
  Age: 59 Year
  Sex: Male

DRUGS (4)
  1. CEFTRIAXONE [Suspect]
     Indication: BRAIN ABSCESS
     Route: 042
  2. SODIUM ENOXAPARIN [Concomitant]
  3. PANTOPRAZOLE [Concomitant]
  4. LISINOPRIL [Concomitant]

REACTIONS (3)
  - Hoigne^s syndrome [None]
  - Infusion related reaction [None]
  - Depression [None]
